FAERS Safety Report 5481286-1 (Version None)
Quarter: 2007Q4

REPORT INFORMATION
  Report Type: 
  Country: None (occurrence: None)
  Receive Date: 20071005
  Receipt Date: 20071005
  Transmission Date: 20080405
  Serious: No
  Sender: FDA-Public Use
  Company Number: None

PATIENT
  Age: 55 Year
  Sex: Female
  Weight: 45 kg

DRUGS (2)
  1. FOSAMAX [Suspect]
  2. ACTONEL [Suspect]

REACTIONS (10)
  - ARRHYTHMIA [None]
  - ARTHRALGIA [None]
  - BONE DISORDER [None]
  - BONE PAIN [None]
  - COCCYDYNIA [None]
  - EYE DISORDER [None]
  - FALL [None]
  - GASTROINTESTINAL DISORDER [None]
  - LOWER LIMB FRACTURE [None]
  - OSTEONECROSIS [None]
